FAERS Safety Report 6624924-X (Version None)
Quarter: 2010Q1

REPORT INFORMATION
  Report Type: 
  Country: None (occurrence: None)
  Receive Date: 20100310
  Receipt Date: 20090916
  Transmission Date: 20100710
  Serious: No
  Sender: FDA-Public Use
  Company Number: US-BIOGENIDEC-2009BI029582

PATIENT
  Age: 35 Year
  Sex: Female
  Weight: 59 kg

DRUGS (4)
  1. AVONEX [Suspect]
     Indication: MULTIPLE SCLEROSIS
     Route: 030
     Dates: start: 20081122
  2. NORTRIPTYLINE HCL [Concomitant]
     Indication: HEADACHE
     Route: 048
     Dates: start: 20080301
  3. RELPAX [Concomitant]
     Indication: HEADACHE
     Route: 048
     Dates: start: 20080301
  4. HYDROXYZINE [Concomitant]
     Indication: HEADACHE
     Route: 048
     Dates: start: 20080301

REACTIONS (1)
  - BURNING SENSATION [None]
